FAERS Safety Report 23294084 (Version 5)
Quarter: 2024Q2

REPORT INFORMATION
  Report Type: Spontaneous
  Country: MX (occurrence: MX)
  Receive Date: 20231213
  Receipt Date: 20240430
  Transmission Date: 20240715
  Serious: Yes (Death, Other)
  Sender: FDA-Public Use
  Company Number: MX-009507513-2312MEX002930

PATIENT
  Age: 76 Year
  Sex: Female

DRUGS (6)
  1. TEMODAL [Suspect]
     Active Substance: TEMOZOLOMIDE
     Indication: Brain neoplasm
     Dosage: 60 MG DAILY FOR 5 DAYS EVERY 28 DAYS; STRENGTH 20 MG
     Route: 048
     Dates: start: 202306, end: 202310
  2. TEMODAL [Suspect]
     Active Substance: TEMOZOLOMIDE
     Dosage: 60 MG DAILY FOR 5 DAYS EVERY 28 DAYS; STRENGTH 20 MG
     Route: 048
     Dates: start: 20231218
  3. TEMODAL [Suspect]
     Active Substance: TEMOZOLOMIDE
     Dosage: 200 MILLIGRAM, QD FOR 5 DAYS EVERY DAY, STRENGTH 100 MG
     Route: 048
     Dates: start: 202301, end: 202310
  4. TEMODAL [Suspect]
     Active Substance: TEMOZOLOMIDE
     Dosage: 200 MILLIGRAM, QD FOR 5 DAYS EVERY DAY, STRENGTH 100 MG
     Route: 048
     Dates: start: 20231218
  5. TEMODAL [Suspect]
     Active Substance: TEMOZOLOMIDE
     Dosage: UNK
     Dates: start: 202403, end: 202403
  6. TEMOZOLOMIDE [Suspect]
     Active Substance: TEMOZOLOMIDE
     Indication: Brain neoplasm
     Dosage: 260 MG DAILY FOR 5 DAYS EVERY 28 DAYS
     Route: 048
     Dates: start: 202310, end: 202312

REACTIONS (5)
  - Delirium [Recovered/Resolved]
  - Fatigue [Unknown]
  - Somnolence [Unknown]
  - Product availability issue [Unknown]
  - Malignant neoplasm progression [Fatal]

NARRATIVE: CASE EVENT DATE: 20230101
